FAERS Safety Report 5347983-3 (Version None)
Quarter: 2007Q2

REPORT INFORMATION
  Report Type: 
  Country: None (occurrence: None)
  Receive Date: 20070606
  Receipt Date: 20070516
  Transmission Date: 20071010
  Serious: Yes (Hospitalization)
  Sender: FDA-Public Use
  Company Number: JP-SHR-JP-2007-015058

PATIENT
  Age: 71 Year
  Sex: Male

DRUGS (5)
  1. SOTALOL HCL [Suspect]
     Dosage: 120 MG, 2X/DAY
     Route: 048
     Dates: start: 20051022, end: 20061021
  2. ACECOL [Concomitant]
     Dosage: 2 MG, 1X/DAY
     Route: 048
     Dates: start: 20051022, end: 20061021
  3. ZYLORIC ^FAES^ [Concomitant]
     Dosage: 100 MG, 1X/DAY
     Route: 048
     Dates: start: 20051022, end: 20061021
  4. SELBEX [Concomitant]
     Dosage: 100 MG, 1X/DAY
     Route: 048
     Dates: start: 20051022, end: 20061021
  5. GASTER D [Concomitant]
     Dosage: 20 MG, 1X/DAY
     Route: 048
     Dates: start: 20051022, end: 20061021

REACTIONS (1)
  - ACUTE HEPATIC FAILURE [None]
